FAERS Safety Report 14419992 (Version 3)
Quarter: 2018Q1

REPORT INFORMATION
  Report Type: Spontaneous
  Country: CA (occurrence: CA)
  Receive Date: 20180122
  Receipt Date: 20180307
  Transmission Date: 20180509
  Serious: Yes (Other)
  Sender: FDA-Public Use
  Company Number: CA-PFIZER INC-2017546664

PATIENT
  Age: 77 Year
  Sex: Female

DRUGS (3)
  1. HUMIRA [Suspect]
     Active Substance: ADALIMUMAB
     Dosage: UNK
  2. METHOTREXATE SODIUM. [Suspect]
     Active Substance: METHOTREXATE SODIUM
     Indication: RHEUMATOID ARTHRITIS
     Dosage: UNK
  3. HUMIRA [Suspect]
     Active Substance: ADALIMUMAB
     Indication: RHEUMATOID ARTHRITIS
     Dosage: 40MG EVERY TWO WEEKS
     Route: 058
     Dates: start: 201612, end: 20171212

REACTIONS (18)
  - Rheumatoid arthritis [Not Recovered/Not Resolved]
  - Pneumonia [Recovering/Resolving]
  - Musculoskeletal stiffness [Unknown]
  - Arthritis [Unknown]
  - Drug ineffective [Unknown]
  - Pulmonary mass [Unknown]
  - Foot deformity [Not Recovered/Not Resolved]
  - Joint swelling [Unknown]
  - Interstitial lung disease [Not Recovered/Not Resolved]
  - Hand deformity [Not Recovered/Not Resolved]
  - Respiratory tract congestion [Unknown]
  - Chest X-ray abnormal [Unknown]
  - Arthralgia [Unknown]
  - Pulmonary fibrosis [Unknown]
  - Laryngitis [Unknown]
  - Condition aggravated [Not Recovered/Not Resolved]
  - Nasopharyngitis [Not Recovered/Not Resolved]
  - Lower respiratory tract infection [Unknown]

NARRATIVE: CASE EVENT DATE: 20161206
